FAERS Safety Report 8185758-0 (Version None)
Quarter: 2012Q1

REPORT INFORMATION
  Report Type: 
  Country: None (occurrence: None)
  Receive Date: 20120305
  Receipt Date: 20120124
  Transmission Date: 20120608
  Serious: Yes (Other)
  Sender: FDA-Public Use
  Company Number: US-AMGEN-USASP2011051094

PATIENT
  Age: 73 Year
  Sex: Female

DRUGS (14)
  1. SIMVASTATIN [Concomitant]
     Dosage: 1 MG, QD
  2. OMEPRAZOLE [Concomitant]
     Dosage: 1 MG, QD
  3. LISINOPRIL [Concomitant]
     Dates: end: 20110901
  4. ASCORBIC ACID [Concomitant]
     Dosage: 1 MG, QD
  5. LISINOPRIL [Concomitant]
     Dosage: UNK
     Dates: end: 20110901
  6. POLICOSANOL [Concomitant]
     Dosage: UNK
  7. PROLIA [Suspect]
     Indication: OSTEOPOROSIS
     Dosage: 60 MG, Q6MO
     Dates: start: 20110215
  8. PROLIA [Suspect]
  9. DICLOFENAC SODIUM [Concomitant]
     Dosage: 2 MG, QD
  10. THYROID TAB [Concomitant]
     Dosage: 1 MG, QD
  11. CALCIUM [Concomitant]
     Dosage: 1 MG, QD
  12. OMEPRAZOLE [Concomitant]
  13. BYSTOLIC [Concomitant]
     Dates: start: 20110901
  14. VITAMIN D [Concomitant]

REACTIONS (9)
  - ARTHRITIS [None]
  - HIATUS HERNIA [None]
  - ROAD TRAFFIC ACCIDENT [None]
  - MUSCULOSKELETAL CHEST PAIN [None]
  - GAIT DISTURBANCE [None]
  - ARTHRALGIA [None]
  - MUSCULOSKELETAL PAIN [None]
  - BACK PAIN [None]
  - PAIN IN EXTREMITY [None]
